FAERS Safety Report 20216866 (Version 1)
Quarter: 2021Q4

REPORT INFORMATION
  Report Type: Spontaneous
  Country: US (occurrence: None)
  Receive Date: 20211222
  Receipt Date: 20211222
  Transmission Date: 20220303
  Serious: Yes (Other)
  Sender: FDA-Public Use
  Company Number: None

PATIENT
  Age: 72 Year
  Sex: Male
  Weight: 94.5 kg

DRUGS (36)
  1. XARELTO [Suspect]
     Active Substance: RIVAROXABAN
     Indication: Cardiac failure
     Dosage: OTHER QUANTITY : 1 TABLET(S);?FREQUENCY : DAILY;?
     Route: 048
     Dates: start: 20211001
  2. ALLOPURINOL [Concomitant]
  3. HYDROCHLOROTHIAZIDE [Concomitant]
     Active Substance: HYDROCHLOROTHIAZIDE
  4. DIUREX [Concomitant]
  5. AMLODIPINE [Concomitant]
     Active Substance: AMLODIPINE BESYLATE
  6. NORVASC [Concomitant]
     Active Substance: AMLODIPINE BESYLATE
  7. BISOPROLOL FUMARATE [Concomitant]
     Active Substance: BISOPROLOL FUMARATE
  8. Ribaroxaban [Concomitant]
  9. Xarelton [Concomitant]
  10. SACUBITRIL\VALSARTAN [Concomitant]
     Active Substance: SACUBITRIL\VALSARTAN
  11. ENTRESTO [Concomitant]
     Active Substance: SACUBITRIL\VALSARTAN
  12. Vymada-Sacubit ril [Concomitant]
  13. DIOVAN [Concomitant]
     Active Substance: VALSARTAN
  14. FEXOFENADINE [Concomitant]
     Active Substance: FEXOFENADINE HYDROCHLORIDE
  15. Allerga [Concomitant]
  16. TRIAMCINOLONE ACETONIDE [Concomitant]
     Active Substance: TRIAMCINOLONE ACETONIDE
  17. ALLOPURINOL [Concomitant]
     Active Substance: ALLOPURINOL
  18. GINGER [Concomitant]
     Active Substance: GINGER
  19. OMEGA 3 [Concomitant]
     Active Substance: CAPSAICIN
  20. Child Aspirin [Concomitant]
  21. Centrum Silver V-E [Concomitant]
  22. Coconut antifungal Beer [Concomitant]
  23. WINE [Concomitant]
     Active Substance: WINE
  24. GARLIC [Concomitant]
     Active Substance: GARLIC
  25. ONION [Concomitant]
     Active Substance: ONION
  26. Almonds [Concomitant]
  27. COFFEE [Concomitant]
     Active Substance: ARABICA COFFEE BEAN\COFFEE BEAN
  28. HERBALS\TURMERIC [Concomitant]
     Active Substance: HERBALS\TURMERIC
  29. OLIVE OIL [Concomitant]
  30. CIALIS [Concomitant]
     Active Substance: TADALAFIL
  31. St. Joseph^s [Concomitant]
  32. Thiamin B1 [Concomitant]
  33. Equate [Concomitant]
  34. Gas X Simethicone [Concomitant]
  35. Glucomannan Fiber Fish Oil gels [Concomitant]
  36. VITAMIN C [Concomitant]
     Active Substance: ASCORBIC ACID

REACTIONS (5)
  - Elephantiasis [None]
  - Dermatitis [None]
  - Drug interaction [None]
  - Therapy cessation [None]
  - Pustule [None]

NARRATIVE: CASE EVENT DATE: 20210915
